FAERS Safety Report 19120538 (Version 1)
Quarter: 2021Q2

REPORT INFORMATION
  Report Type: Spontaneous
  Country: US (occurrence: US)
  Receive Date: 20210409
  Receipt Date: 20210409
  Transmission Date: 20210717
  Serious: Yes (Other)
  Sender: FDA-Public Use
  Company Number: None

PATIENT
  Age: 51 Year
  Sex: Female
  Weight: 68.04 kg

DRUGS (1)
  1. GENERIC ZOLOFT 100MG [Suspect]
     Active Substance: SERTRALINE HYDROCHLORIDE
     Indication: MAJOR DEPRESSION
     Route: 048
     Dates: start: 201107, end: 20111020

REACTIONS (3)
  - Product substitution issue [None]
  - Disease recurrence [None]
  - Depression [None]

NARRATIVE: CASE EVENT DATE: 20111020
